FAERS Safety Report 25830621 (Version 1)
Quarter: 2025Q3

REPORT INFORMATION
  Report Type: Spontaneous
  Country: CA (occurrence: CA)
  Receive Date: 20250922
  Receipt Date: 20250922
  Transmission Date: 20251020
  Serious: Yes (Other)
  Sender: Onesource Specialty Pharma
  Company Number: CA-STRIDES ARCOLAB LIMITED-2025OS000726

PATIENT
  Age: 28 Year
  Sex: Female

DRUGS (3)
  1. AMANTADINE [Suspect]
     Active Substance: AMANTADINE
     Indication: Parkinson^s disease
     Route: 065
  2. SELEGILINE [Suspect]
     Active Substance: SELEGILINE
     Indication: Parkinson^s disease
     Route: 065
  3. BACLOFEN [Suspect]
     Active Substance: BACLOFEN
     Indication: Parkinson^s disease
     Route: 065

REACTIONS (2)
  - Withdrawal syndrome [Unknown]
  - Parkinson^s disease [None]
